FAERS Safety Report 7858696-8 (Version None)
Quarter: 2011Q4

REPORT INFORMATION
  Report Type: 
  Country: None (occurrence: None)
  Receive Date: 20111027
  Receipt Date: 20111018
  Transmission Date: 20120403
  Serious: Yes (Hospitalization)
  Sender: FDA-Public Use
  Company Number: US-US-EMD SERONO, INC.-7003181

PATIENT
  Sex: Female
  Weight: 66 kg

DRUGS (11)
  1. ZYRTEC [Concomitant]
     Indication: HYPERSENSITIVITY
  2. REBIF [Suspect]
     Indication: MULTIPLE SCLEROSIS
     Route: 058
     Dates: start: 20050412
  3. REBIF [Suspect]
     Route: 058
  4. PROTONIX [Concomitant]
     Indication: DYSPEPSIA
  5. TOPAMAX [Concomitant]
     Indication: BACK PAIN
  6. WELLBUTRIN XL [Concomitant]
     Indication: DEPRESSION
  7. UNSPECIFIED DIET PILLS [Concomitant]
  8. TOPAMAX [Concomitant]
     Indication: MIGRAINE
  9. REBIF [Suspect]
     Route: 058
     Dates: start: 20100301, end: 20100401
  10. XANAX [Concomitant]
     Indication: ANXIETY
  11. ZANAFLEX [Concomitant]
     Indication: MUSCLE SPASMS

REACTIONS (6)
  - DEPRESSION [None]
  - HYPERTENSION [None]
  - FRUSTRATION [None]
  - INJECTION SITE REACTION [None]
  - DRUG ADMINISTRATION ERROR [None]
  - SUICIDE ATTEMPT [None]
